FAERS Safety Report 16918048 (Version 1)
Quarter: 2019Q4

REPORT INFORMATION
  Report Type: Spontaneous
  Country: IT (occurrence: IT)
  Receive Date: 20191015
  Receipt Date: 20191015
  Transmission Date: 20200122
  Serious: Yes (Other)
  Sender: FDA-Public Use
  Company Number: IT-TEVA-2019-IT-1121875

PATIENT
  Age: 50 Year
  Sex: Female

DRUGS (2)
  1. PEGYLATED-INTERFERON-ALPHA2A [Suspect]
     Active Substance: PEGINTERFERON ALFA-2A
     Indication: CHRONIC HEPATITIS C
     Route: 065
  2. RIBAVIRIN. [Suspect]
     Active Substance: RIBAVIRIN
     Indication: CHRONIC HEPATITIS C
     Dosage: 200 MILLIGRAM DAILY; LOW DOSE RIBAVIRIN
     Route: 065

REACTIONS (5)
  - Anaemia [Recovering/Resolving]
  - Influenza like illness [Unknown]
  - Condition aggravated [Recovering/Resolving]
  - Fatigue [Recovering/Resolving]
  - Neuropathy peripheral [Recovering/Resolving]
